FAERS Safety Report 18240619 (Version 1)
Quarter: 2020Q3

REPORT INFORMATION
  Report Type: Spontaneous
  Country: US (occurrence: US)
  Receive Date: 20200904
  Receipt Date: 20200904
  Transmission Date: 20201103
  Serious: Yes (Hospitalization)
  Sender: FDA-Public Use
  Company Number: None

PATIENT
  Age: 52 Year
  Sex: Male
  Weight: 81 kg

DRUGS (6)
  1. DESMOPRESSIN ACETATE NASAL SOLUTION [Suspect]
     Active Substance: DESMOPRESSIN ACETATE
     Dosage: ?          QUANTITY:2 PUFF(S);?
     Route: 045
     Dates: start: 19800601
  2. LEVOTHYROXINE. [Concomitant]
     Active Substance: LEVOTHYROXINE
  3. DDAVP [Concomitant]
     Active Substance: DESMOPRESSIN ACETATE
  4. HYDROCORTISONE. [Concomitant]
     Active Substance: HYDROCORTISONE
  5. ENANTHATE [Concomitant]
     Active Substance: TESTOSTERONE ENANTHATE
  6. TESTOSTERONE. [Concomitant]
     Active Substance: TESTOSTERONE

REACTIONS (4)
  - Blood sodium decreased [None]
  - Confusional state [None]
  - Insomnia [None]
  - Headache [None]

NARRATIVE: CASE EVENT DATE: 20200613
